FAERS Safety Report 13711696 (Version 1)
Quarter: 2017Q3

REPORT INFORMATION
  Report Type: Spontaneous
  Country: FR (occurrence: FR)
  Receive Date: 20170703
  Receipt Date: 20170703
  Transmission Date: 20171127
  Serious: Yes (Hospitalization)
  Sender: FDA-Public Use
  Company Number: FR-SA-2017SA114567

PATIENT
  Age: 63 Year
  Sex: Female

DRUGS (9)
  1. COVERSYL [Concomitant]
     Active Substance: PERINDOPRIL
     Route: 065
  2. CARDENSIEL [Concomitant]
     Active Substance: BISOPROLOL FUMARATE
     Route: 065
  3. LEVOTHYROX [Concomitant]
     Active Substance: LEVOTHYROXINE
     Route: 065
  4. DOLIPRANE [Concomitant]
     Active Substance: ACETAMINOPHEN
     Indication: PAIN
     Route: 065
  5. LOVENOX [Suspect]
     Active Substance: ENOXAPARIN SODIUM
     Route: 058
     Dates: start: 201704, end: 20170421
  6. SINGULAIR [Concomitant]
     Active Substance: MONTELUKAST SODIUM
     Route: 065
  7. SINTROM [Concomitant]
     Active Substance: ACENOCOUMAROL
     Dosage: 3 / 4 /DAY
     Route: 065
  8. LASILIX [Concomitant]
     Active Substance: FUROSEMIDE
     Dosage: 2-1-0/DAY
     Route: 065
  9. DIFFU K [Concomitant]
     Active Substance: POTASSIUM CHLORIDE
     Dosage: 2-0-1/DAY
     Route: 065

REACTIONS (1)
  - Toxic skin eruption [Recovered/Resolved]

NARRATIVE: CASE EVENT DATE: 20170421
